FAERS Safety Report 18276449 (Version 1)
Quarter: 2020Q3

REPORT INFORMATION
  Report Type: Spontaneous
  Country: US (occurrence: US)
  Receive Date: 20200917
  Receipt Date: 20200917
  Transmission Date: 20201103
  Serious: No
  Sender: FDA-Public Use
  Company Number: US-AUROBINDO-AUR-APL-2019-068854

PATIENT
  Age: 53 Year
  Sex: Female
  Weight: 80.73 kg

DRUGS (1)
  1. CETIRIZINE HYDROCHLORIDE TABLETS USP 10MG [Suspect]
     Active Substance: CETIRIZINE HYDROCHLORIDE
     Indication: HYPERSENSITIVITY
     Dosage: 10 MILLIGRAM, DAILY (FROM A COUPLE OF MONTHS AGO)
     Route: 065

REACTIONS (1)
  - Feeling abnormal [Recovered/Resolved]
